FAERS Safety Report 5078569-6 (Version None)
Quarter: 2006Q3

REPORT INFORMATION
  Report Type: 
  Country: None (occurrence: None)
  Receive Date: 20060808
  Receipt Date: 20060724
  Transmission Date: 20061208
  Serious: Yes (Life-Threatening, Hospitalization)
  Sender: FDA-Public Use
  Company Number: 2006SP001230

PATIENT
  Age: 53 Year
  Sex: Female
  Weight: 66 kg

DRUGS (29)
  1. LUNESTA [Suspect]
     Indication: INSOMNIA
     Dosage: 270 MG; 1X; ORAL; 3 MG; HS; ORAL
     Route: 048
     Dates: end: 20060101
  2. LUNESTA [Suspect]
     Indication: INSOMNIA
     Dosage: 270 MG; 1X; ORAL; 3 MG; HS; ORAL
     Route: 048
     Dates: start: 20060312, end: 20060312
  3. WELLBUTRIN [Concomitant]
  4. PROZAC [Concomitant]
  5. TRAZODONE HCL [Concomitant]
  6. ESTROGENS [Concomitant]
  7. PROGESTERONE [Concomitant]
  8. TESTOSTERONE [Concomitant]
  9. SOMA [Concomitant]
  10. COMMIT [Concomitant]
  11. IBUPROFEN [Concomitant]
  12. ASPIRIN [Concomitant]
  13. DECONGESTANT [Concomitant]
  14. PEPPERMINT OIL [Concomitant]
  15. MULTIVITAMIN [Concomitant]
  16. ASCORBIC ACID [Concomitant]
  17. OCUVITE [Concomitant]
  18. PSYLLIUM [Concomitant]
  19. PECTIN [Concomitant]
  20. VITAMIN E [Concomitant]
  21. OMEGA 3 [Concomitant]
  22. VIITAMIN B COMPLEX [Concomitant]
  23. PROBIOTICA [Concomitant]
  24. MULTI-VITAMINS [Concomitant]
  25. MELATONIN [Concomitant]
  26. FOLIC ACID [Concomitant]
  27. VITAMIN B-12 [Concomitant]
  28. VITAMIN B-12 [Concomitant]
  29. GLUCOSAMINE [Concomitant]

REACTIONS (9)
  - ASPARTATE AMINOTRANSFERASE INCREASED [None]
  - BLOOD ALCOHOL INCREASED [None]
  - DEPRESSED LEVEL OF CONSCIOUSNESS [None]
  - DYSARTHRIA [None]
  - HYPOTENSION [None]
  - INTENTIONAL OVERDOSE [None]
  - LETHARGY [None]
  - SUICIDE ATTEMPT [None]
  - TREATMENT NONCOMPLIANCE [None]
